FAERS Safety Report 13871958 (Version 1)
Quarter: 2017Q3

REPORT INFORMATION
  Report Type: Spontaneous
  Country: FR (occurrence: FR)
  Receive Date: 20170816
  Receipt Date: 20170816
  Transmission Date: 20171127
  Serious: Yes (Other)
  Sender: FDA-Public Use
  Company Number: FR-PFIZER INC-2017349878

PATIENT
  Age: 81 Year
  Sex: Female

DRUGS (1)
  1. LONOTEN [Suspect]
     Active Substance: MINOXIDIL
     Indication: HYPERTENSION
     Dosage: 10 MG, 1X/DAY
     Route: 048
     Dates: start: 20170609, end: 20170628

REACTIONS (4)
  - Drug ineffective [Unknown]
  - Oedema [Recovered/Resolved]
  - Asthenia [Recovered/Resolved]
  - Weight increased [Unknown]

NARRATIVE: CASE EVENT DATE: 20170615
